FAERS Safety Report 8910099 (Version 1)
Quarter: 2012Q4

REPORT INFORMATION
  Report Type: 
  Country: US (occurrence: US)
  Receive Date: 20121115
  Receipt Date: 20121115
  Transmission Date: 20130627
  Serious: Yes (Hospitalization, Other)
  Sender: FDA-Public Use
  Company Number: US-ABBOTT-12P-163-1002874-00

PATIENT
  Age: 56 None
  Sex: Female
  Weight: 49.94 kg

DRUGS (8)
  1. HUMIRA [Suspect]
     Indication: CROHN^S DISEASE
     Dates: start: 20120614, end: 20120614
  2. CT CONTRAST DYE [Suspect]
     Indication: COMPUTERISED TOMOGRAM
     Dates: start: 20121002, end: 20121002
  3. CLONAZEPAM [Concomitant]
     Indication: ANXIETY
  4. ENSURE [Concomitant]
     Indication: CROHN^S DISEASE
  5. MIRALAX [Concomitant]
     Indication: CROHN^S DISEASE
  6. MULTIPLE VITAMINS [Concomitant]
     Indication: VITAMIN SUPPLEMENTATION
  7. TRAMADOL [Concomitant]
     Indication: CROHN^S DISEASE
  8. TRAZADONE [Concomitant]
     Indication: SLEEP DISORDER THERAPY

REACTIONS (9)
  - Chills [Recovered/Resolved]
  - Hyperhidrosis [Recovered/Resolved]
  - Pyrexia [Recovered/Resolved]
  - Alopecia [Not Recovered/Not Resolved]
  - Weight decreased [Not Recovered/Not Resolved]
  - Pneumonia [Recovering/Resolving]
  - Pulmonary oedema [Not Recovered/Not Resolved]
  - Rash [Unknown]
  - Pulmonary sarcoidosis [Not Recovered/Not Resolved]
